FAERS Safety Report 4983872-1 (Version None)
Quarter: 2006Q2

REPORT INFORMATION
  Report Type: 
  Country: None (occurrence: None)
  Receive Date: 20060426
  Receipt Date: 20051221
  Transmission Date: 20061013
  Serious: Yes (Death, Hospitalization, Other)
  Sender: FDA-Public Use
  Company Number: US-MERCK-0512USA03643

PATIENT
  Age: 56 Year
  Sex: Female
  Weight: 107 kg

DRUGS (3)
  1. VIOXX [Suspect]
     Indication: ARTHRITIS
     Route: 048
     Dates: start: 20031016, end: 20031222
  2. MACROBID [Concomitant]
     Route: 065
  3. FEMHRT [Concomitant]
     Route: 065

REACTIONS (3)
  - ABDOMINAL PAIN [None]
  - DEATH [None]
  - PULMONARY EMBOLISM [None]
